FAERS Safety Report 7445001-4 (Version None)
Quarter: 2011Q2

REPORT INFORMATION
  Report Type: 
  Country: None (occurrence: None)
  Receive Date: 20110429
  Receipt Date: 20110425
  Transmission Date: 20111010
  Serious: Yes (Death)
  Sender: FDA-Public Use
  Company Number: PHHY2011CO20810

PATIENT
  Age: 83 Year
  Sex: Female

DRUGS (3)
  1. DIOVAN HCT [Suspect]
     Indication: HYPERTENSION
     Dosage: 160 MG VALS AND 12.5 MG HYDR(1 TABLET DAY)
     Route: 048
     Dates: start: 20101001, end: 20110215
  2. LEVOTIROXINE [Concomitant]
     Indication: HYPOTHYROIDISM
     Dosage: UNK
  3. ESPIRONOLACTONE [Concomitant]
     Dosage: UNK

REACTIONS (2)
  - POST PROCEDURAL SEPSIS [None]
  - COLON CANCER [None]
